FAERS Safety Report 14845812 (Version 2)
Quarter: 2018Q2

REPORT INFORMATION
  Report Type: Spontaneous
  Country: US (occurrence: US)
  Receive Date: 20180504
  Receipt Date: 20180522
  Transmission Date: 20180711
  Serious: Yes (Hospitalization)
  Sender: FDA-Public Use
  Company Number: US-ROCHE-2117997

PATIENT
  Sex: Male

DRUGS (1)
  1. OCREVUS [Suspect]
     Active Substance: OCRELIZUMAB
     Indication: RELAPSING MULTIPLE SCLEROSIS
     Dosage: 2X300 MG IV INFUSIONS 2 WEEKS APART IN DEC
     Route: 042
     Dates: start: 201712

REACTIONS (2)
  - Osteomyelitis [Recovering/Resolving]
  - Cellulitis [Unknown]
